FAERS Safety Report 8502322-1 (Version None)
Quarter: 2012Q3

REPORT INFORMATION
  Report Type: 
  Country: None (occurrence: None)
  Receive Date: 20120711
  Receipt Date: 20120627
  Transmission Date: 20120928
  Serious: No
  Sender: FDA-Public Use
  Company Number: US-ASTRAZENECA-2012SE43720

PATIENT
  Age: 69 Year
  Sex: Female

DRUGS (2)
  1. COZAAR [Concomitant]
  2. TOPROL-XL [Suspect]
     Route: 048

REACTIONS (2)
  - MALAISE [None]
  - PAIN [None]
